FAERS Safety Report 11068681 (Version 1)
Quarter: 2015Q2

REPORT INFORMATION
  Report Type: Spontaneous
  Country: US (occurrence: None)
  Receive Date: 20150424
  Receipt Date: 20150424
  Transmission Date: 20150821
  Serious: Yes (Other)
  Sender: FDA-Public Use
  Company Number: None

PATIENT
  Age: 12 Year
  Sex: Male
  Weight: 53.98 kg

DRUGS (5)
  1. XXXXXXXX [Concomitant]
  2. ATAROX [Concomitant]
  3. RISPERIDONE 0.5 MG BY ZYGENERICS [Suspect]
     Active Substance: RISPERIDONE
     Indication: AUTISM
     Dosage: 0.5 MG B10
     Dates: start: 20150203, end: 20150325
  4. FOCOXXXX [Concomitant]
  5. COGXXXX [Concomitant]

REACTIONS (2)
  - General physical health deterioration [None]
  - Drug level decreased [None]

NARRATIVE: CASE EVENT DATE: 20150325
